FAERS Safety Report 5273150-8 (Version None)
Quarter: 2007Q1

REPORT INFORMATION
  Report Type: 
  Country: None (occurrence: None)
  Receive Date: 20070322
  Receipt Date: 20070315
  Transmission Date: 20070707
  Serious: Yes (Hospitalization)
  Sender: FDA-Public Use
  Company Number: DE-BOEHRINGER INGELHEIM PHARMACEUTICALS, INC.-2007-DE-01568DE

PATIENT
  Age: 73 Year
  Sex: Male
  Weight: 75 kg

DRUGS (1)
  1. SIFROL [Suspect]
     Indication: RESTLESS LEGS SYNDROME

REACTIONS (2)
  - ANGINA PECTORIS [None]
  - ARTERIOSPASM CORONARY [None]
